FAERS Safety Report 24763602 (Version 1)
Quarter: 2024Q4

REPORT INFORMATION
  Report Type: Spontaneous
  Country: US (occurrence: US)
  Receive Date: 20241223
  Receipt Date: 20241223
  Transmission Date: 20250115
  Serious: No
  Sender: AMGEN
  Company Number: US-AMGEN-USASP2016046457

PATIENT

DRUGS (5)
  1. CARFILZOMIB [Suspect]
     Active Substance: CARFILZOMIB
     Indication: Plasma cell myeloma refractory
     Dosage: 20 MILLIGRAM/SQ. METER,  DAY 1 AND 2 OF CYCLE 1/ IVPB
     Route: 042
  2. CARFILZOMIB [Suspect]
     Active Substance: CARFILZOMIB
     Dosage: 27 MILLIGRAM/SQ. METER, DAY 8 AND ONWARDS / IVPB
     Route: 042
  3. PELAREOREP [Suspect]
     Active Substance: PELAREOREP
     Indication: Plasma cell myeloma
     Dosage: UNK UNK, QD (3 X 10^9 TCID /DAY)/ IVPB
     Route: 040
  4. PELAREOREP [Suspect]
     Active Substance: PELAREOREP
     Dosage: UNK UNK, QD (3 X 10^10 TCID /DAY)/ IVPB
     Route: 040
  5. DEXAMETHASONE [Concomitant]
     Active Substance: DEXAMETHASONE
     Indication: Plasma cell myeloma refractory
     Dosage: 20 MILLIGRAM  DAYS 1, 2, 8, 9, 15, AND 16 OF A 28-DAY CYCLE/ IVP
     Route: 040

REACTIONS (1)
  - Drug hypersensitivity [Unknown]
